FAERS Safety Report 22601686 (Version 1)
Quarter: 2023Q2

REPORT INFORMATION
  Report Type: Spontaneous
  Country: US (occurrence: None)
  Receive Date: 20230613
  Receipt Date: 20230613
  Transmission Date: 20230721
  Serious: Yes (Death)
  Sender: FDA-Public Use
  Company Number: None

PATIENT
  Age: 50 Year
  Sex: Male

DRUGS (6)
  1. TACROLIMUS [Suspect]
     Active Substance: TACROLIMUS
     Indication: Liver transplant
     Dosage: FREQUENCY : EVERY 12 HOURS;?
     Route: 048
     Dates: start: 20230516, end: 20230601
  2. ASPIRIN CHW [Concomitant]
  3. AUGMENTIN [Concomitant]
     Active Substance: AMOXICILLIN\CLAVULANATE POTASSIUM
  4. BARACLUDE [Concomitant]
     Active Substance: ENTECAVIR
  5. ENTECAVIR [Concomitant]
     Active Substance: ENTECAVIR
  6. URSODIOL [Concomitant]
     Active Substance: URSODIOL

REACTIONS (1)
  - Death [None]

NARRATIVE: CASE EVENT DATE: 20230601
